FAERS Safety Report 24642977 (Version 4)
Quarter: 2024Q4

REPORT INFORMATION
  Report Type: Spontaneous
  Country: US (occurrence: US)
  Receive Date: 20241120
  Receipt Date: 20241226
  Transmission Date: 20250115
  Serious: Yes (Other)
  Sender: PFIZER
  Company Number: US-PFIZER INC-PV202400136430

PATIENT
  Age: 64 Year
  Sex: Female

DRUGS (1)
  1. TUKYSA [Suspect]
     Active Substance: TUCATINIB
     Dosage: 300 MG, 2X/DAY (TWO TABLETS TWICE A DAY)

REACTIONS (3)
  - Carpal tunnel syndrome [Unknown]
  - Cardiac disorder [Unknown]
  - Hypometabolism [Unknown]
